FAERS Safety Report 15491854 (Version 1)
Quarter: 2018Q4

REPORT INFORMATION
  Report Type: Spontaneous
  Country: US (occurrence: US)
  Receive Date: 20181012
  Receipt Date: 20181012
  Transmission Date: 20190205
  Serious: Yes (Hospitalization)
  Sender: FDA-Public Use
  Company Number: US-HORIZON-RAV-0170-2018

PATIENT
  Age: 1 Year
  Sex: Male

DRUGS (1)
  1. RAVICTI [Suspect]
     Active Substance: GLYCEROL PHENYLBUTYRATE
     Dosage: 1 ML THREE TIMES DAILY WITH MEALS

REACTIONS (1)
  - Hyperammonaemia [Unknown]

NARRATIVE: CASE EVENT DATE: 20181004
